FAERS Safety Report 21107563 (Version 4)
Quarter: 2023Q2

REPORT INFORMATION
  Report Type: Spontaneous
  Country: GB (occurrence: GB)
  Receive Date: 20220720
  Receipt Date: 20230629
  Transmission Date: 20230722
  Serious: Yes (Hospitalization, Other)
  Sender: FDA-Public Use
  Company Number: GB-Actavis-081331

PATIENT
  Age: 52 Year
  Sex: Male
  Weight: 98.3 kg

DRUGS (10)
  1. MORPHINE SULFATE [Suspect]
     Active Substance: MORPHINE SULFATE
     Indication: Product used for unknown indication
     Dosage: UNK
     Route: 065
     Dates: start: 2021
  2. CARBOPLATIN [Suspect]
     Active Substance: CARBOPLATIN
     Indication: Anal squamous cell carcinoma
     Dosage: AUC 5 (ON DAY 1 OF EACH 28-DAY CYCLE)
     Route: 042
     Dates: start: 2021
  3. CARBOPLATIN [Suspect]
     Active Substance: CARBOPLATIN
     Dosage: AUC 5 (ON DAY 1 OF EACH 28-DAY CYCLE)
     Dates: start: 20211028
  4. CARBOPLATIN [Suspect]
     Active Substance: CARBOPLATIN
     Dosage: AUC 5 (ON DAY 1 OF EACH 28-DAY CYCLE); ;
     Route: 065
  5. GABAPENTIN [Suspect]
     Active Substance: GABAPENTIN
     Indication: Anal squamous cell carcinoma
     Dosage: UNK
     Route: 065
     Dates: start: 2021
  6. GABAPENTIN [Suspect]
     Active Substance: GABAPENTIN
     Indication: Product used for unknown indication
  7. MORPHINE SULFATE [Suspect]
     Active Substance: MORPHINE SULFATE
     Indication: Product used for unknown indication
     Dosage: UNK
     Route: 050
     Dates: start: 2021
  8. PACLITAXEL [Suspect]
     Active Substance: PACLITAXEL
     Indication: Anal squamous cell carcinoma
     Dosage: 80 MILLIGRAM/SQ. METER (C2D1, ON DAYS 1, 8 AND 15 OF EACH 28-DAY CYCLE;;  )
     Route: 042
     Dates: start: 20211028
  9. PACLITAXEL [Suspect]
     Active Substance: PACLITAXEL
     Dosage: 80 MILLIGRAM/SQ. METER (ON DAYS 1, 8 AND 15 OF EACH 28-DAY CYCLE;;  )
     Route: 042
  10. PACLITAXEL [Suspect]
     Active Substance: PACLITAXEL
     Dosage: 80 MILLIGRAM/SQ. METER (ON DAYS 1, 8 AND 15 OF EACH 28-DAY CYCLE;;  )
     Route: 042
     Dates: start: 20211026, end: 20211026

REACTIONS (4)
  - Wound infection [Not Recovered/Not Resolved]
  - Infusion related reaction [Recovered/Resolved]
  - Neutropenic sepsis [Recovered/Resolved]
  - Somnolence [Not Recovered/Not Resolved]

NARRATIVE: CASE EVENT DATE: 20211007
